FAERS Safety Report 9878190 (Version 1)
Quarter: 2014Q1

REPORT INFORMATION
  Report Type: Spontaneous
  Country: US (occurrence: US)
  Receive Date: 20140206
  Receipt Date: 20140206
  Transmission Date: 20141002
  Serious: No
  Sender: FDA-Public Use
  Company Number: US-009507513-1402USA001073

PATIENT
  Sex: Female

DRUGS (1)
  1. CLARITIN [Suspect]
     Indication: NASOPHARYNGITIS
     Dosage: 10 MG, ONCE
     Route: 048
     Dates: start: 20140122

REACTIONS (3)
  - Nausea [Unknown]
  - Expired drug administered [Unknown]
  - Off label use [Unknown]
